FAERS Safety Report 14988343 (Version 1)
Quarter: 2018Q2

REPORT INFORMATION
  Report Type: Spontaneous
  Country: US (occurrence: US)
  Receive Date: 20180608
  Receipt Date: 20180608
  Transmission Date: 20180711
  Serious: Yes (Other)
  Sender: FDA-Public Use
  Company Number: US-SA-2018SA106428

PATIENT
  Age: 60 Year
  Sex: Female

DRUGS (11)
  1. HERCEPTIN [Concomitant]
     Active Substance: TRASTUZUMAB
  2. POTASSIUM CHLORIDE. [Concomitant]
     Active Substance: POTASSIUM CHLORIDE
  3. HYDROCHLOROTHIAZIDE. [Concomitant]
     Active Substance: HYDROCHLOROTHIAZIDE
  4. NEULASTA [Concomitant]
     Active Substance: PEGFILGRASTIM
  5. TAXOTERE [Suspect]
     Active Substance: DOCETAXEL
     Dosage: 150 MG, Q3W
     Route: 042
     Dates: start: 20110512, end: 20110512
  6. ARIMIDEX [Concomitant]
     Active Substance: ANASTROZOLE
  7. CARBOPLATIN. [Concomitant]
     Active Substance: CARBOPLATIN
  8. TAXOTERE [Suspect]
     Active Substance: DOCETAXEL
     Indication: BREAST CANCER
     Dosage: 150 MG, Q3W
     Route: 042
     Dates: start: 20110117, end: 20110117
  9. APREPITANT. [Concomitant]
     Active Substance: APREPITANT
  10. TAXANES [Concomitant]
     Active Substance: UNSPECIFIED INGREDIENT
  11. LISINOPRIL. [Concomitant]
     Active Substance: LISINOPRIL

REACTIONS (1)
  - Alopecia [Recovering/Resolving]

NARRATIVE: CASE EVENT DATE: 20110117
